FAERS Safety Report 6106435-3 (Version None)
Quarter: 2009Q1

REPORT INFORMATION
  Report Type: 
  Country: None (occurrence: None)
  Receive Date: 20090306
  Receipt Date: 20090223
  Transmission Date: 20090719
  Serious: Yes (Hospitalization)
  Sender: FDA-Public Use
  Company Number: US-WATSON-2009-01316

PATIENT
  Age: 12 Year
  Sex: Female

DRUGS (14)
  1. ETOPOSIDE [Suspect]
     Indication: EWING'S SARCOMA
     Dosage: UNK
     Route: 065
  2. CARBOPLATIN (WATSON LABORATORIES) [Suspect]
     Indication: EWING'S SARCOMA
     Dosage: UNK
     Route: 065
  3. IRINOTECAN HYDROCHLORIDE [Suspect]
     Indication: EWING'S SARCOMA
     Dosage: UNK
  4. MELPHALAN [Suspect]
     Indication: EWING'S SARCOMA
     Dosage: UNK
     Route: 065
  5. FLUDARABINE PHOSPHATE [Suspect]
     Indication: EWING'S SARCOMA
     Dosage: UNK
  6. THIOTEPA [Suspect]
     Indication: EWING'S SARCOMA
     Dosage: UNK
  7. IFOSFAMIDE [Suspect]
     Indication: EWING'S SARCOMA
  8. CYCLOPHOSPHAMIDE [Suspect]
     Indication: EWING'S SARCOMA
  9. CYCLOPHOSPHAMIDE [Suspect]
     Indication: METASTASES TO LUNG
  10. ADRIAMYCIN PFS [Suspect]
     Indication: EWING'S SARCOMA
  11. VINCRISTINE [Suspect]
     Indication: EWING'S SARCOMA
  12. TOPOTECAN [Suspect]
     Indication: METASTASES TO LUNG
  13. VINBLASTINE [Suspect]
     Indication: METASTASES TO LUNG
  14. EPIDERMAL GROWTH FACTOR RECEPTOR ANTAGONIST (ZD1839) [Suspect]
     Indication: NEOPLASM PROGRESSION

REACTIONS (3)
  - LEUKOENCEPHALOPATHY [None]
  - MYELOPATHY [None]
  - NEUROPATHY PERIPHERAL [None]
